FAERS Safety Report 9498868 (Version 2)
Quarter: 2013Q4

REPORT INFORMATION
  Report Type: Spontaneous
  Country: GB (occurrence: GB)
  Receive Date: 20130904
  Receipt Date: 20131127
  Transmission Date: 20140711
  Serious: Yes (Hospitalization)
  Sender: FDA-Public Use
  Company Number: GB-ASTRAZENECA-2013SE65785

PATIENT
  Age: 47 Year
  Sex: Female
  Weight: 47.9 kg

DRUGS (12)
  1. FULVESTRANT [Suspect]
     Indication: BREAST CANCER METASTATIC
     Route: 030
     Dates: start: 20130514
  2. XELODA [Suspect]
     Route: 048
     Dates: start: 20130718, end: 20130721
  3. PLACEBO [Suspect]
     Indication: BREAST CANCER METASTATIC
     Route: 048
     Dates: start: 20130530
  4. ZOMETA [Suspect]
     Indication: BONE PAIN
     Route: 042
     Dates: start: 20130124
  5. ZOMETA [Suspect]
     Indication: METASTATIC NEOPLASM
     Route: 042
     Dates: start: 20130124
  6. GABAPENTIN [Concomitant]
  7. GAVISCON [Concomitant]
  8. NYSTATIN [Concomitant]
  9. OMEPRAZOLE [Concomitant]
  10. OXYCODONE [Concomitant]
  11. OXYCODONE [Concomitant]
  12. PARACETAMOL [Concomitant]

REACTIONS (1)
  - Oesophagitis [Recovered/Resolved]
